FAERS Safety Report 6961189-3 (Version None)
Quarter: 2010Q3

REPORT INFORMATION
  Report Type: 
  Country: None (occurrence: None)
  Receive Date: 20100901
  Receipt Date: 20100823
  Transmission Date: 20110219
  Serious: Yes (Hospitalization)
  Sender: FDA-Public Use
  Company Number: AU-WATSON-2010-11280

PATIENT
  Sex: Female

DRUGS (4)
  1. TRELSTAR DEPOT [Suspect]
     Indication: OVARIAN FAILURE
     Dosage: UNK
     Route: 030
     Dates: start: 20060420, end: 20070516
  2. TAMOXIFEN CITRATE [Suspect]
     Indication: OVARIAN FAILURE
     Dosage: 20 MG, DAILY
     Route: 065
     Dates: start: 20060420
  3. CHEMOTHERAPEUTICS NOS [Concomitant]
     Indication: PRODUCT USED FOR UNKNOWN INDICATION
     Dosage: UNK
     Route: 065
  4. RADIOTHERAPY [Concomitant]
     Indication: PRODUCT USED FOR UNKNOWN INDICATION
     Dosage: UNK
     Route: 065

REACTIONS (1)
  - ANKLE FRACTURE [None]
